FAERS Safety Report 17562658 (Version 4)
Quarter: 2020Q4

REPORT INFORMATION
  Report Type: Report from Study
  Country: IE (occurrence: IE)
  Receive Date: 20200319
  Receipt Date: 20201124
  Transmission Date: 20210113
  Serious: Yes (Other)
  Sender: FDA-Public Use
  Company Number: IE-JNJFOC-20200219269

PATIENT
  Age: 82 Year
  Sex: Male

DRUGS (8)
  1. ASPRIN [Concomitant]
     Active Substance: ASPIRIN
     Route: 050
  2. EMCOR [Concomitant]
     Active Substance: BISOPROLOL
     Route: 050
  3. ZYTIGA [Suspect]
     Active Substance: ABIRATERONE ACETATE
     Indication: PROSTATE CANCER
     Route: 048
     Dates: start: 20171113
  4. BICALUTAMIDE. [Concomitant]
     Active Substance: BICALUTAMIDE
     Route: 050
  5. LISINOPRIL. [Concomitant]
     Active Substance: LISINOPRIL
     Route: 050
  6. COMBODART [Concomitant]
     Active Substance: DUTASTERIDE\TAMSULOSIN
     Dosage: 500/400 MCG
     Route: 050
  7. DELTACORTRIL [Concomitant]
     Active Substance: PREDNISOLONE
     Route: 050
  8. ATORVASTATIN [Concomitant]
     Active Substance: ATORVASTATIN
     Route: 050

REACTIONS (3)
  - Nocturia [Not Recovered/Not Resolved]
  - Urinary retention [Not Recovered/Not Resolved]
  - Abdominal pain lower [Not Recovered/Not Resolved]
